FAERS Safety Report 18471787 (Version 1)
Quarter: 2020Q4

REPORT INFORMATION
  Report Type: Spontaneous
  Country: FR (occurrence: FR)
  Receive Date: 20201106
  Receipt Date: 20201106
  Transmission Date: 20210114
  Serious: Yes (Hospitalization)
  Sender: FDA-Public Use
  Company Number: FR-TEVA-2020-FR-1844834

PATIENT
  Age: 59 Year
  Sex: Male
  Weight: 78 kg

DRUGS (10)
  1. BACTRIM [Suspect]
     Active Substance: SULFAMETHOXAZOLE\TRIMETHOPRIM
     Indication: INFECTION
     Route: 048
     Dates: start: 20200106, end: 20200130
  2. INEXIUM 40 MG, COMPRIME GASTRO-RESISTANT [Concomitant]
     Active Substance: ESOMEPRAZOLE MAGNESIUM
  3. ASPIRINE PROTECT 100 MG, COMPRIME GASTRO-RESISTANT [Concomitant]
     Active Substance: ASPIRIN
  4. VERAPAMIL (CHLORHYDRATE DE) [Concomitant]
     Active Substance: VERAPAMIL HYDROCHLORIDE
  5. DALACINE [Suspect]
     Active Substance: CLINDAMYCIN
     Indication: INFECTION
     Route: 048
     Dates: start: 20200106, end: 20200205
  6. TAHOR [Concomitant]
     Active Substance: ATORVASTATIN CALCIUM
  7. TARDYFERON [Concomitant]
     Active Substance: FERROUS SULFATE
  8. CANDESARTAN CILEXETIL. [Concomitant]
     Active Substance: CANDESARTAN CILEXETIL
  9. VANCOMYCINE [Suspect]
     Active Substance: VANCOMYCIN
     Indication: INFECTION
     Route: 051
     Dates: start: 20191218, end: 20200106
  10. MOLSIDOMINE [Concomitant]
     Active Substance: MOLSIDOMINE

REACTIONS (1)
  - Drug reaction with eosinophilia and systemic symptoms [Recovered/Resolved]

NARRATIVE: CASE EVENT DATE: 20200205
